FAERS Safety Report 4820038-X (Version None)
Quarter: 2005Q4

REPORT INFORMATION
  Report Type: 
  Country: None (occurrence: None)
  Receive Date: 20051031
  Receipt Date: 20050919
  Transmission Date: 20060501
  Serious: No
  Sender: FDA-Public Use
  Company Number: WAES 0509USA03034

PATIENT

DRUGS (3)
  1. EMEND [Suspect]
     Indication: CHEMOTHERAPY
     Dosage: PO
     Route: 048
  2. EMEND [Suspect]
     Indication: PROPHYLAXIS
     Dosage: PO
     Route: 048
  3. DEXAMETHASONE [Suspect]

REACTIONS (1)
  - BLOOD GLUCOSE INCREASED [None]
